FAERS Safety Report 4854250-0 (Version None)
Quarter: 2005Q4

REPORT INFORMATION
  Report Type: 
  Country: None (occurrence: None)
  Receive Date: 20051213
  Receipt Date: 20051213
  Transmission Date: 20060501
  Serious: Yes (Hospitalization)
  Sender: FDA-Public Use
  Company Number: None

PATIENT
  Age: 57 Year
  Sex: Female
  Weight: 72.5755 kg

DRUGS (5)
  1. LEVOFLOXACIN [Suspect]
     Indication: BRONCHITIS ACUTE
     Dosage: 500MG DAILY ORAL    ONE DOSE
     Route: 048
     Dates: start: 20050822, end: 20050822
  2. LEVOTHYROXINE SODIUM [Concomitant]
  3. PREMARIN [Concomitant]
  4. FUROSEMIDE [Concomitant]
  5. PAROXETINE HCL [Concomitant]

REACTIONS (6)
  - BREATH SOUNDS ABNORMAL [None]
  - CHEST PAIN [None]
  - DYSPNOEA [None]
  - THROAT TIGHTNESS [None]
  - URTICARIA [None]
  - WHEEZING [None]
